FAERS Safety Report 18985171 (Version 1)
Quarter: 2021Q1

REPORT INFORMATION
  Report Type: Spontaneous
  Country: FR (occurrence: FR)
  Receive Date: 20210309
  Receipt Date: 20210309
  Transmission Date: 20210420
  Serious: Yes (Hospitalization)
  Sender: FDA-Public Use
  Company Number: FR-ROCHE-2783457

PATIENT
  Age: 71 Year
  Sex: Male
  Weight: 108.1 kg

DRUGS (15)
  1. VANCOMYCINE [Concomitant]
     Active Substance: VANCOMYCIN
  2. LERCANIDIPINE [Concomitant]
     Active Substance: LERCANIDIPINE
  3. INNOHEP [Suspect]
     Active Substance: TINZAPARIN SODIUM
     Indication: PULMONARY EMBOLISM
     Route: 058
     Dates: start: 20210112, end: 20210113
  4. LANSOYL [Concomitant]
     Active Substance: MINERAL OIL
  5. INNOHEP [Suspect]
     Active Substance: TINZAPARIN SODIUM
     Indication: PULMONARY EMBOLISM
     Route: 058
     Dates: start: 20210114, end: 20210117
  6. ECONAZOLE. [Suspect]
     Active Substance: ECONAZOLE NITRATE
     Indication: PRODUCT USED FOR UNKNOWN INDICATION
     Route: 065
  7. OXYCODONE [Concomitant]
     Active Substance: OXYCODONE
  8. LEVOTHYROXINE SODIQUE [Concomitant]
     Active Substance: LEVOTHYROXINE SODIUM
  9. MOVENTIG [Concomitant]
     Active Substance: NALOXEGOL OXALATE
  10. FLECAINE [Concomitant]
     Active Substance: FLECAINIDE
  11. STILNOX [Concomitant]
     Active Substance: ZOLPIDEM TARTRATE
  12. DIAZEPAM. [Suspect]
     Active Substance: DIAZEPAM
     Indication: PRODUCT USED FOR UNKNOWN INDICATION
     Route: 065
  13. PRIMPERAN [Concomitant]
     Active Substance: METOCLOPRAMIDE HYDROCHLORIDE
  14. FINASTERIDE. [Concomitant]
     Active Substance: FINASTERIDE
  15. TAMSULOSINE [Concomitant]
     Active Substance: TAMSULOSIN HYDROCHLORIDE

REACTIONS (2)
  - Heparin-induced thrombocytopenia [Recovered/Resolved]
  - Heparin-induced thrombocytopenia test positive [Not Recovered/Not Resolved]

NARRATIVE: CASE EVENT DATE: 20210113
